FAERS Safety Report 7718804-6 (Version None)
Quarter: 2011Q3

REPORT INFORMATION
  Report Type: 
  Country: None (occurrence: None)
  Receive Date: 20110830
  Receipt Date: 20110825
  Transmission Date: 20111222
  Serious: Yes (Other)
  Sender: FDA-Public Use
  Company Number: US-PFIZER INC-2011197787

PATIENT
  Sex: Male

DRUGS (1)
  1. CHANTIX [Suspect]
     Dosage: UNK
     Dates: start: 20100322

REACTIONS (5)
  - MIGRAINE [None]
  - HEART RATE IRREGULAR [None]
  - DIZZINESS [None]
  - CARDIAC DISORDER [None]
  - HEART INJURY [None]
